FAERS Safety Report 9419858 (Version 1)
Quarter: 2013Q3

REPORT INFORMATION
  Report Type: Spontaneous
  Country: US (occurrence: US)
  Receive Date: 20130725
  Receipt Date: 20130725
  Transmission Date: 20140515
  Serious: Yes (Life-Threatening)
  Sender: FDA-Public Use
  Company Number: US-B.I. PHARMACEUTICALS,INC./RIDGEFIELD-2013-BI-21503BP

PATIENT
  Sex: Male

DRUGS (3)
  1. COMBIVENT [Suspect]
     Indication: CHRONIC OBSTRUCTIVE PULMONARY DISEASE
     Dosage: STRENGTH: 20 MCG / 100 MCG; DAILY DOSE: 80 MCG/ 400 MCG
     Route: 055
     Dates: start: 20130716
  2. COMBIVENT [Suspect]
     Indication: EMPHYSEMA
     Dosage: STRENGTH: 18 MCG / 103 MCG; DAILY DOSE: 144 MCG/ 824 MCG
     Route: 055
     Dates: start: 2008, end: 20130716
  3. ADVAIR [Concomitant]
     Indication: CHRONIC OBSTRUCTIVE PULMONARY DISEASE

REACTIONS (6)
  - Myocardial infarction [Unknown]
  - Dyspnoea exertional [Not Recovered/Not Resolved]
  - Cough [Not Recovered/Not Resolved]
  - Throat irritation [Not Recovered/Not Resolved]
  - Overdose [Not Recovered/Not Resolved]
  - Drug effect decreased [Not Recovered/Not Resolved]
